FAERS Safety Report 4747884-5 (Version None)
Quarter: 2005Q3

REPORT INFORMATION
  Report Type: 
  Country: None (occurrence: None)
  Receive Date: 20050816
  Receipt Date: 20050808
  Transmission Date: 20060218
  Serious: Yes (Other)
  Sender: FDA-Public Use
  Company Number: COV2-2005-00169

PATIENT
  Age: 42 Year
  Sex: Female
  Weight: 60 kg

DRUGS (12)
  1. FOSRENOL [Suspect]
     Indication: HYPERPHOSPHATAEMIA
     Dosage: 500 MG, 3X/DAY:TID, ORAL
     Route: 048
     Dates: start: 20050709, end: 20050722
  2. BENADRYL ^ACHE^ (SODIUM CITRATE, MENTHOL, DIPHENHYDRAMINE HYDROCHLORID [Concomitant]
  3. ALEVE/00256202/(NAPROXEN SODIUM) [Concomitant]
  4. SOLVITOL [Concomitant]
  5. HYDROXYZINE [Concomitant]
  6. ENALAPRIL MALEATE [Concomitant]
  7. NEXIUM [Concomitant]
  8. RENAGEL [Concomitant]
  9. NEPHRO-VITE RX (ASCORBIC ACID, FOLIC ACID, VITAMIN B NOS) [Concomitant]
  10. ATENOLOL [Concomitant]
  11. NORVASC/DEN/(AMLODIPINE BESILATE) [Concomitant]
  12. CALCITRIOL [Concomitant]

REACTIONS (2)
  - NAUSEA [None]
  - RASH PRURITIC [None]
